FAERS Safety Report 21017543 (Version 1)
Quarter: 2022Q2

REPORT INFORMATION
  Report Type: Spontaneous
  Country: US (occurrence: US)
  Receive Date: 20220628
  Receipt Date: 20220628
  Transmission Date: 20220720
  Serious: No
  Sender: FDA-Public Use
  Company Number: US-PFIZER INC-202200894331

PATIENT
  Age: 50 Year
  Sex: Male
  Weight: 83.91 kg

DRUGS (3)
  1. PHENYTOIN SODIUM [Suspect]
     Active Substance: PHENYTOIN SODIUM
     Indication: Generalised tonic-clonic seizure
     Dosage: 400 MG, 1X/DAY (100MG CAPSULE, 4 CAPSULES A DAY)
     Route: 048
     Dates: start: 2000
  2. MYSOLINE [Concomitant]
     Active Substance: PRIMIDONE
     Indication: Generalised tonic-clonic seizure
     Dosage: 250 MG, 1X/DAY
     Route: 048
     Dates: start: 1969
  3. PHENOBARBITAL [Concomitant]
     Active Substance: PHENOBARBITAL
     Indication: Generalised tonic-clonic seizure
     Dosage: 97.2 MG, DAILY (3 TABLETS A DAY, 32.4MG PER TABLET)
     Route: 048
     Dates: start: 1969

REACTIONS (1)
  - Feeling abnormal [Unknown]

NARRATIVE: CASE EVENT DATE: 20000101
